FAERS Safety Report 17859788 (Version 1)
Quarter: 2020Q2

REPORT INFORMATION
  Report Type: Spontaneous
  Country: US (occurrence: US)
  Receive Date: 20200603
  Receipt Date: 20200603
  Transmission Date: 20200714
  Serious: Yes (Hospitalization)
  Sender: FDA-Public Use
  Company Number: None

PATIENT
  Age: 45 Year
  Sex: Female
  Weight: 139.2 kg

DRUGS (4)
  1. CYCLOPHASPHAMIDE [Suspect]
     Active Substance: CYCLOPHOSPHAMIDE
  2. FLUDARABINE [Suspect]
     Active Substance: FLUDARABINE PHOSPHATE
  3. YESCARTA [Suspect]
     Active Substance: AXICABTAGENE CILOLEUCEL
  4. TOCILIZUMAB. [Suspect]
     Active Substance: TOCILIZUMAB

REACTIONS (13)
  - Headache [None]
  - Memory impairment [None]
  - Paraesthesia [None]
  - Fatigue [None]
  - Asthenia [None]
  - Neurotoxicity [None]
  - Somnolence [None]
  - Encephalopathy [None]
  - Malaise [None]
  - Pyrexia [None]
  - Nausea [None]
  - Altered state of consciousness [None]
  - Depressed level of consciousness [None]

NARRATIVE: CASE EVENT DATE: 20200507
